FAERS Safety Report 5841990-X (Version None)
Quarter: 2008Q3

REPORT INFORMATION
  Report Type: 
  Country: None (occurrence: None)
  Receive Date: 20080812
  Receipt Date: 20020227
  Transmission Date: 20090109
  Serious: Yes (Other)
  Sender: FDA-Public Use
  Company Number: US-MERCK-01060089B1

PATIENT
  Age: 0 Day
  Sex: Male
  Weight: 4 kg

DRUGS (6)
  1. SINGULAIR [Suspect]
     Indication: ASTHMA
     Route: 064
  2. INSULIN [Concomitant]
     Indication: DIABETES MELLITUS
     Route: 064
  3. THEOPHYLLINE [Concomitant]
     Route: 064
  4. FLOVENT [Concomitant]
     Route: 064
  5. SEREVENT [Concomitant]
     Route: 064
  6. ALBUTEROL [Concomitant]
     Route: 064

REACTIONS (3)
  - CAESAREAN SECTION [None]
  - FOETAL DISTRESS SYNDROME [None]
  - MATERNAL DRUGS AFFECTING FOETUS [None]
